FAERS Safety Report 15098435 (Version 2)
Quarter: 2018Q3

REPORT INFORMATION
  Report Type: Report from Study
  Country: CN (occurrence: CN)
  Receive Date: 20180702
  Receipt Date: 20180717
  Transmission Date: 20181010
  Serious: Yes (Death)
  Sender: FDA-Public Use
  Company Number: PHHY2016CN144882

PATIENT
  Age: 58 Year
  Sex: Female
  Weight: 64 kg

DRUGS (6)
  1. TYLOX [Concomitant]
     Active Substance: ACETAMINOPHEN\OXYCODONE HYDROCHLORIDE
     Indication: TUMOUR PAIN
     Dosage: 1 DF, BID
     Route: 048
     Dates: start: 20170320
  2. HERCEPTIN [Concomitant]
     Active Substance: TRASTUZUMAB
     Indication: BREAST CANCER
     Dosage: 380 MG, QD
     Route: 042
     Dates: start: 20160905, end: 20170206
  3. TYKERB [Suspect]
     Active Substance: LAPATINIB DITOSYLATE
     Indication: BREAST CANCER
     Dosage: 1000 MG, QD
     Route: 048
     Dates: start: 20160905
  4. CAPECITABINE. [Suspect]
     Active Substance: CAPECITABINE
     Indication: BREAST CANCER
     Dosage: 5 DF, BID
     Route: 048
     Dates: start: 20150226
  5. FENTANYL. [Concomitant]
     Active Substance: FENTANYL
     Indication: TUMOUR PAIN
     Dosage: 5 MG, UNK (1/3 DAYS)
     Route: 050
     Dates: start: 20170406
  6. DIAZEPAM. [Concomitant]
     Active Substance: DIAZEPAM
     Indication: POOR QUALITY SLEEP
     Dosage: 1 DF, QD
     Route: 048
     Dates: start: 20170320

REACTIONS (6)
  - Metastases to central nervous system [Fatal]
  - Decreased appetite [Not Recovered/Not Resolved]
  - Malignant neoplasm progression [Fatal]
  - Constipation [Not Recovered/Not Resolved]
  - Breast cancer [Fatal]
  - Rash [Recovered/Resolved]

NARRATIVE: CASE EVENT DATE: 20160913
